FAERS Safety Report 19247819 (Version 1)
Quarter: 2021Q2

REPORT INFORMATION
  Report Type: Spontaneous
  Country: ES (occurrence: ES)
  Receive Date: 20210512
  Receipt Date: 20210512
  Transmission Date: 20210717
  Serious: Yes (Hospitalization, Other)
  Sender: FDA-Public Use
  Company Number: ES-PFIZER INC-2021479432

PATIENT
  Age: 60 Year
  Sex: Female

DRUGS (7)
  1. HIDROALTESONA [Concomitant]
     Active Substance: HYDROCORTISONE
  2. OMEPRAZOLE. [Concomitant]
     Active Substance: OMEPRAZOLE
  3. SOMAVERT [Suspect]
     Active Substance: PEGVISOMANT
     Indication: ACROMEGALY
     Dosage: 20 MG, 1X/DAY
     Route: 058
     Dates: start: 2004
  4. EUTIROX [Concomitant]
     Active Substance: LEVOTHYROXINE SODIUM
  5. METFORMIN [Concomitant]
     Active Substance: METFORMIN HYDROCHLORIDE
  6. EULITOP [BEZAFIBRATE] [Concomitant]
     Active Substance: BEZAFIBRATE
  7. ADIRO [Concomitant]
     Active Substance: ASPIRIN

REACTIONS (4)
  - Ankle fracture [Recovering/Resolving]
  - Neoplasm [Recovered/Resolved]
  - Fall [Recovering/Resolving]
  - Limb mass [Recovered/Resolved]
